FAERS Safety Report 12523745 (Version 11)
Quarter: 2018Q3

REPORT INFORMATION
  Report Type: Report from Study
  Country: BE (occurrence: BE)
  Receive Date: 20160704
  Receipt Date: 20180911
  Transmission Date: 20181010
  Serious: Yes (Hospitalization)
  Sender: FDA-Public Use
  Company Number: BE-ROCHE-1786381

PATIENT
  Age: 71 Year
  Sex: Male

DRUGS (49)
  1. RAMIPRIL. [Concomitant]
     Active Substance: RAMIPRIL
     Indication: HYPERTENSION
     Route: 065
     Dates: start: 2006, end: 20160706
  2. PERFUSALGAN [Concomitant]
     Active Substance: ACETAMINOPHEN
     Dosage: BEFORE EVERY OBINUTUZUMAB ADMINISTRATION
     Route: 065
     Dates: start: 20160622, end: 20160622
  3. PERFUSALGAN [Concomitant]
     Active Substance: ACETAMINOPHEN
     Route: 065
     Dates: start: 20160623, end: 20160623
  4. PERFUSALGAN [Concomitant]
     Active Substance: ACETAMINOPHEN
     Route: 065
     Dates: start: 20161012, end: 20161012
  5. TAVEGYL [Concomitant]
     Active Substance: CLEMASTINE FUMARATE
     Dosage: BEFORE EVERY OBINUTUZUMAB ADMINISTRATION
     Route: 065
     Dates: start: 20160622, end: 20160622
  6. TAVEGYL [Concomitant]
     Active Substance: CLEMASTINE FUMARATE
     Dosage: BEFORE EVERY OBINUTUZUMAB ADMINISTRATION
     Route: 065
     Dates: start: 20160623, end: 20160623
  7. TAVEGYL [Concomitant]
     Active Substance: CLEMASTINE FUMARATE
     Dosage: BEFORE EVERY OBINUTUZUMAB ADMINISTRATION
     Route: 065
     Dates: start: 20160817, end: 20160817
  8. ACP?196 [Suspect]
     Active Substance: ACALABRUTINIB
     Indication: CHRONIC LYMPHOCYTIC LEUKAEMIA
     Dosage: RECEIVED FIRST DOSE AT 10:20
     Route: 048
     Dates: start: 20160524
  9. PERFUSALGAN [Concomitant]
     Active Substance: ACETAMINOPHEN
     Route: 065
     Dates: start: 20160720, end: 20160720
  10. TAVEGYL [Concomitant]
     Active Substance: CLEMASTINE FUMARATE
     Dosage: BEFORE EVERY OBINUTUZUMAB ADMINISTRATION
     Route: 065
     Dates: start: 20160914, end: 20160914
  11. DAFALGAN [Concomitant]
     Active Substance: ACETAMINOPHEN
     Indication: INFUSION RELATED REACTION
     Route: 065
     Dates: start: 20160601, end: 20180104
  12. PERFUSALGAN [Concomitant]
     Active Substance: ACETAMINOPHEN
     Route: 065
     Dates: start: 20160706, end: 20160706
  13. PERFUSALGAN [Concomitant]
     Active Substance: ACETAMINOPHEN
     Route: 065
     Dates: start: 20160817, end: 20160817
  14. PERFUSALGAN [Concomitant]
     Active Substance: ACETAMINOPHEN
     Route: 065
     Dates: start: 20161109, end: 20161109
  15. SOLU?MEDROL [Concomitant]
     Active Substance: METHYLPREDNISOLONE SODIUM SUCCINATE
     Dosage: BEFORE EVERY OBINUTUZUMAB ADMINISTRATION
     Route: 065
     Dates: start: 20160623, end: 20160623
  16. TAVEGYL [Concomitant]
     Active Substance: CLEMASTINE FUMARATE
     Dosage: BEFORE EVERY OBINUTUZUMAB ADMINISTRATION
     Route: 065
     Dates: start: 20161012, end: 20161012
  17. TAVEGYL [Concomitant]
     Active Substance: CLEMASTINE FUMARATE
     Dosage: BEFORE EVERY OBINUTUZUMAB ADMINISTRATION
     Route: 065
     Dates: start: 20161109, end: 20161109
  18. DAFALGAN [Concomitant]
     Active Substance: ACETAMINOPHEN
     Indication: MYALGIA
     Dosage: OBINUTUZUMAB INFUSION REACTION
     Route: 065
     Dates: start: 20160622, end: 20160622
  19. UNI DIAMICRON [Concomitant]
     Active Substance: GLICLAZIDE
     Indication: TYPE 2 DIABETES MELLITUS
     Route: 065
     Dates: start: 2002
  20. STAURODORM [Concomitant]
     Indication: INSOMNIA
     Route: 065
     Dates: start: 20121004, end: 20160523
  21. MATRIFEN [Concomitant]
     Active Substance: FENTANYL
     Indication: HERPES ZOSTER
     Route: 065
     Dates: start: 20161104, end: 20161113
  22. REDOMEX [Concomitant]
     Active Substance: AMITRIPTYLINE HYDROCHLORIDE
     Indication: HERPES ZOSTER
     Route: 065
     Dates: start: 20161020, end: 20161110
  23. OBINUTUZUMAB. [Suspect]
     Active Substance: OBINUTUZUMAB
     Route: 042
     Dates: start: 20161109, end: 20161109
  24. OBINUTUZUMAB. [Suspect]
     Active Substance: OBINUTUZUMAB
     Route: 042
     Dates: start: 20160706, end: 20160706
  25. PANTOMED (PANTOPRAZOLE) [Concomitant]
     Active Substance: PANTOPRAZOLE
     Indication: BARRETT^S OESOPHAGUS
     Route: 065
     Dates: start: 2007, end: 20160523
  26. PERFUSALGAN [Concomitant]
     Active Substance: ACETAMINOPHEN
     Route: 065
     Dates: start: 20160914, end: 20160914
  27. SOLU?MEDROL [Concomitant]
     Active Substance: METHYLPREDNISOLONE SODIUM SUCCINATE
     Dosage: BEFORE EVERY OBINUTUZUMAB ADMINISTRATION
     Route: 065
     Dates: start: 20160706, end: 20160706
  28. SOLU?MEDROL [Concomitant]
     Active Substance: METHYLPREDNISOLONE SODIUM SUCCINATE
     Dosage: BEFORE EVERY OBINUTUZUMAB ADMINISTRATION
     Route: 065
     Dates: start: 20160720, end: 20160720
  29. SOLU?MEDROL [Concomitant]
     Active Substance: METHYLPREDNISOLONE SODIUM SUCCINATE
     Dosage: BEFORE EVERY OBINUTUZUMAB ADMINISTRATION
     Route: 065
     Dates: start: 20161012, end: 20161012
  30. TAVEGYL [Concomitant]
     Active Substance: CLEMASTINE FUMARATE
     Dosage: BEFORE EVERY OBINUTUZUMAB ADMINISTRATION
     Route: 065
     Dates: start: 20160720, end: 20160720
  31. VALACICLOVIR [Concomitant]
     Active Substance: VALACYCLOVIR HYDROCHLORIDE
     Route: 065
     Dates: start: 20161103, end: 20161110
  32. DEPO?MEDROL [Concomitant]
     Active Substance: METHYLPREDNISOLONE ACETATE
     Dosage: 1 INJECTION ONCE TIME ONLY
     Route: 065
     Dates: start: 20170112, end: 20170112
  33. OBINUTUZUMAB. [Suspect]
     Active Substance: OBINUTUZUMAB
     Indication: CHRONIC LYMPHOCYTIC LEUKAEMIA
     Route: 042
     Dates: start: 20160622, end: 20160622
  34. CIPROXIN [Concomitant]
     Active Substance: CIPROFLOXACIN
     Indication: PROSTATITIS
     Route: 065
     Dates: start: 20160427, end: 20160517
  35. ZOLPIDEM [Concomitant]
     Active Substance: ZOLPIDEM\ZOLPIDEM TARTRATE
     Dosage: PREVENTION INSOMNIA
     Route: 065
     Dates: start: 20160524, end: 20170426
  36. SOLU?MEDROL [Concomitant]
     Active Substance: METHYLPREDNISOLONE SODIUM SUCCINATE
     Dosage: BEFORE EVERY OBINUTUZUMAB ADMINISTRATION
     Route: 065
     Dates: start: 20160914, end: 20160914
  37. ZANTAC [Concomitant]
     Active Substance: RANITIDINE HYDROCHLORIDE
     Route: 065
     Dates: start: 20160627, end: 201610
  38. SOLU?MEDROL [Concomitant]
     Active Substance: METHYLPREDNISOLONE SODIUM SUCCINATE
     Dosage: BEFORE EVERY OBINUTUZUMAB ADMINISTRATION
     Route: 065
     Dates: start: 20160817, end: 20160817
  39. TAVEGYL [Concomitant]
     Active Substance: CLEMASTINE FUMARATE
     Dosage: BEFORE EVERY OBINUTUZUMAB ADMINISTRATION
     Route: 065
     Dates: start: 20160706, end: 20160706
  40. DEPO?MEDROL [Concomitant]
     Active Substance: METHYLPREDNISOLONE ACETATE
     Dosage: 1 INJECTION ONCE TIME ONLY
     Route: 065
     Dates: start: 20161222, end: 20161222
  41. ZOPICLONE [Concomitant]
     Active Substance: ZOPICLONE
     Dosage: PREVENTION INSOMNIA
     Route: 065
     Dates: start: 20170427, end: 20180311
  42. OBINUTUZUMAB. [Suspect]
     Active Substance: OBINUTUZUMAB
     Route: 042
     Dates: start: 20160623, end: 20160623
  43. OBINUTUZUMAB. [Suspect]
     Active Substance: OBINUTUZUMAB
     Route: 042
     Dates: start: 20160720, end: 20160720
  44. ZANTAC [Concomitant]
     Active Substance: RANITIDINE HYDROCHLORIDE
     Indication: BARRETT^S OESOPHAGUS
     Route: 065
     Dates: start: 20160524, end: 20160626
  45. INEGY [Concomitant]
     Active Substance: EZETIMIBE\SIMVASTATIN
     Indication: HYPERLIPIDAEMIA
     Dosage: 10/80 MG
     Route: 065
     Dates: start: 2006
  46. METFORMIN [Concomitant]
     Active Substance: METFORMIN HYDROCHLORIDE
     Indication: TYPE 2 DIABETES MELLITUS
     Route: 065
     Dates: start: 2002
  47. SOLU?MEDROL [Concomitant]
     Active Substance: METHYLPREDNISOLONE SODIUM SUCCINATE
     Dosage: BEFORE EVERY OBINUTUZUMAB ADMINISTRATION
     Route: 065
     Dates: start: 20160622, end: 20160622
  48. VALACICLOVIR [Concomitant]
     Active Substance: VALACYCLOVIR HYDROCHLORIDE
     Indication: HERPES ZOSTER
     Route: 065
     Dates: start: 20161020, end: 20161102
  49. ZOPICLONE [Concomitant]
     Active Substance: ZOPICLONE
     Dosage: PREVENTION INSOMNIA
     Route: 065
     Dates: start: 20180312

REACTIONS (3)
  - Hepatitis toxic [Recovered/Resolved]
  - Benign prostatic hyperplasia [Recovered/Resolved]
  - Urinary retention postoperative [Recovered/Resolved]

NARRATIVE: CASE EVENT DATE: 20160627
